FAERS Safety Report 9698394 (Version 1)
Quarter: 2013Q4

REPORT INFORMATION
  Report Type: Report from Study
  Country: LB (occurrence: LB)
  Receive Date: 20131120
  Receipt Date: 20131120
  Transmission Date: 20140711
  Serious: Yes (Death)
  Sender: FDA-Public Use
  Company Number: LB-SA-2013SA117162

PATIENT
  Age: 73 Year
  Sex: Female

DRUGS (11)
  1. LANTUS SOLOSTAR [Suspect]
     Indication: DIABETES MELLITUS
     Dosage: DOSE:32 UNIT(S)
     Route: 058
     Dates: start: 201212
  2. SOLOSTAR [Concomitant]
     Indication: DEVICE THERAPY
     Route: 058
  3. APIDRA [Concomitant]
     Indication: DIABETES MELLITUS
     Dosage: DOSE:12 UNIT(S)
     Route: 048
  4. TRIATEC [Concomitant]
     Route: 048
  5. LASIX [Concomitant]
     Route: 048
  6. DIAMICRON [Concomitant]
     Indication: DIABETES MELLITUS
     Route: 048
  7. DISCOTRINE [Concomitant]
     Dosage: FORM- PATCH
     Route: 048
  8. CIPRALEX [Concomitant]
     Route: 048
  9. LIPITOR [Concomitant]
     Route: 048
  10. EBIXA [Concomitant]
     Route: 048
  11. EPANUTIN [Concomitant]
     Route: 048

REACTIONS (3)
  - Hepatic cirrhosis [Fatal]
  - Dementia Alzheimer^s type [Fatal]
  - General physical health deterioration [Fatal]
